FAERS Safety Report 4846700-0 (Version None)
Quarter: 2005Q4

REPORT INFORMATION
  Report Type: 
  Country: None (occurrence: None)
  Receive Date: 20051206
  Receipt Date: 20051130
  Transmission Date: 20060501
  Serious: Yes (Hospitalization)
  Sender: FDA-Public Use
  Company Number: US-MERCK-0512USA00191

PATIENT
  Sex: Male

DRUGS (10)
  1. ZOCOR [Suspect]
     Route: 048
  2. LOPID [Concomitant]
     Route: 065
  3. ZANTAC [Concomitant]
     Route: 065
  4. COREG [Concomitant]
     Route: 048
  5. DEMADEX [Concomitant]
     Route: 048
  6. GLUCOTROL [Concomitant]
     Route: 065
  7. DIGOXIN [Concomitant]
     Route: 048
  8. CLONOPIN [Concomitant]
     Route: 065
  9. CVS SPECTRAVITE TABLETS [Concomitant]
     Route: 048
  10. [THERAPY UNSPECIFIED] [Concomitant]
     Indication: DIURETIC THERAPY
     Route: 048

REACTIONS (3)
  - PARALYSIS [None]
  - RENAL DISORDER [None]
  - WEIGHT INCREASED [None]
